FAERS Safety Report 15484560 (Version 1)
Quarter: 2018Q4

REPORT INFORMATION
  Report Type: Spontaneous
  Country: US (occurrence: US)
  Receive Date: 20181010
  Receipt Date: 20181010
  Transmission Date: 20190205
  Serious: No
  Sender: FDA-Public Use
  Company Number: US-FRESENIUS KABI-FK201810500

PATIENT
  Age: 56 Year
  Sex: Female

DRUGS (2)
  1. BACTERIOSTATIC SODIUM CHLORIDE [Suspect]
     Active Substance: SODIUM CHLORIDE
     Indication: DERMAL FILLER INJECTION
     Dosage: 3 CCS WERE MIXED WITH 100 CC OF BOTOX; 20 CC OF MIXED PRODUCT ADMINISTERED.?NDC 63323-259-30
     Route: 050
     Dates: start: 20180927, end: 20180927
  2. BOTULINUM TOXIN TYPE A [Concomitant]
     Active Substance: BOTULINUM TOXIN TYPE A
     Indication: SKIN COSMETIC PROCEDURE
     Dosage: 100 CCS WERE MIXED WITH 3 CC OF SODIUM CHLORIDE 0.9%; 20 CC OF MIXED PRODUCT ADMINISTERED.
     Route: 050
     Dates: start: 20180927, end: 20180927

REACTIONS (1)
  - Application site pain [Recovered/Resolved]

NARRATIVE: CASE EVENT DATE: 20180927
